FAERS Safety Report 21064533 (Version 1)
Quarter: 2022Q3

REPORT INFORMATION
  Report Type: Spontaneous
  Country: US (occurrence: US)
  Receive Date: 20220711
  Receipt Date: 20220711
  Transmission Date: 20221027
  Serious: No
  Sender: FDA-Public Use
  Company Number: US-FERRINGPH-2021FE06346

PATIENT
  Sex: Male

DRUGS (2)
  1. ZOMACTON [Suspect]
     Active Substance: SOMATROPIN
     Indication: Insulin-like growth factor abnormal
     Route: 065
  2. ZOMACTON [Suspect]
     Active Substance: SOMATROPIN
     Indication: Off label use

REACTIONS (4)
  - Pruritus [Unknown]
  - Therapeutic product ineffective for unapproved indication [Unknown]
  - Suspected counterfeit product [Unknown]
  - Off label use [Unknown]
